FAERS Safety Report 17846029 (Version 1)
Quarter: 2020Q2

REPORT INFORMATION
  Report Type: Spontaneous
  Country: US (occurrence: US)
  Receive Date: 20200531
  Receipt Date: 20200531
  Transmission Date: 20200714
  Serious: Yes (Other)
  Sender: FDA-Public Use
  Company Number: None

PATIENT
  Sex: Female
  Weight: 45.9 kg

DRUGS (1)
  1. SINGULAIR [Suspect]
     Active Substance: MONTELUKAST SODIUM
     Indication: HYPERSENSITIVITY
     Dosage: ?          QUANTITY:1 TABLET(S);?
     Route: 048
     Dates: start: 20191209, end: 20200527

REACTIONS (8)
  - Eye pruritus [None]
  - Therapeutic product effect incomplete [None]
  - Condition aggravated [None]
  - Panic attack [None]
  - Suicidal ideation [None]
  - Insomnia [None]
  - Dry eye [None]
  - Migraine [None]
